FAERS Safety Report 7576240-X (Version None)
Quarter: 2011Q2

REPORT INFORMATION
  Report Type: 
  Country: None (occurrence: None)
  Receive Date: 20110628
  Receipt Date: 20110610
  Transmission Date: 20111010
  Serious: Yes (Death, Other)
  Sender: FDA-Public Use
  Company Number: US-BAYER-201041704NA

PATIENT
  Age: 69 Year
  Sex: Male
  Weight: 79.819 kg

DRUGS (10)
  1. IMDUR [Concomitant]
     Dosage: 30 MG
     Route: 048
  2. PROTAMINE SULFATE [Concomitant]
     Dosage: 360 MG
     Route: 042
     Dates: start: 20000626, end: 20000626
  3. NORVASC [Concomitant]
     Route: 048
  4. ACETYLSALICYLIC ACID SRT [Concomitant]
     Dosage: 325 MG
     Route: 048
  5. TRASYLOL [Suspect]
     Indication: CORONARY ARTERY BYPASS
     Dosage: UNK
     Route: 042
     Dates: start: 20000626
  6. NITROGLYCERIN [Concomitant]
     Dosage: UNK
     Route: 042
     Dates: start: 20000601
  7. AMICAR [Concomitant]
     Dosage: 10 GM
     Dates: start: 20000626
  8. LOPRESSOR [Concomitant]
  9. HEPARIN [Concomitant]
     Dosage: 24,000 UNITS
     Route: 042
     Dates: start: 20000624
  10. COUMADIN [Concomitant]
     Dosage: 2.6 MG
     Route: 048

REACTIONS (12)
  - FEAR [None]
  - RENAL IMPAIRMENT [None]
  - ANXIETY [None]
  - UNEVALUABLE EVENT [None]
  - RENAL INJURY [None]
  - EMOTIONAL DISTRESS [None]
  - STRESS [None]
  - DEATH [None]
  - MULTI-ORGAN FAILURE [None]
  - CARDIAC FAILURE [None]
  - PAIN [None]
  - RENAL FAILURE [None]
